FAERS Safety Report 6910472-6 (Version None)
Quarter: 2010Q3

REPORT INFORMATION
  Report Type: 
  Country: None (occurrence: None)
  Receive Date: 20100806
  Receipt Date: 20100726
  Transmission Date: 20110219
  Serious: Yes (Hospitalization)
  Sender: FDA-Public Use
  Company Number: DE-ELI_LILLY_AND_COMPANY-DE201007006295

PATIENT
  Sex: Female
  Weight: 89 kg

DRUGS (5)
  1. GEMCITABINE HCL [Suspect]
     Indication: BREAST CANCER
     Dosage: 1990 MG, UNKNOWN
     Route: 042
     Dates: start: 20100526, end: 20100603
  2. DOCETAXEL [Suspect]
     Indication: BREAST CANCER
     Dosage: 149.5 MG, UNKNOWN
     Route: 042
     Dates: start: 20100526, end: 20100526
  3. NAVOBAN [Concomitant]
     Indication: BREAST CANCER
     Dosage: 5 MG, UNK
     Route: 042
     Dates: start: 20100526, end: 20100603
  4. DEXAMETHASONE [Concomitant]
     Indication: BREAST CANCER
     Dosage: 8 MG, UNKNOWN
     Route: 042
     Dates: start: 20100526, end: 20100603
  5. EMEND [Concomitant]
     Indication: BREAST CANCER
     Dosage: 125 MG, UNKNOWN
     Route: 065
     Dates: start: 20100526

REACTIONS (9)
  - CONSTIPATION [None]
  - DEHYDRATION [None]
  - DIARRHOEA [None]
  - HYPOCALCAEMIA [None]
  - LEUKOPENIA [None]
  - MUCOSAL INFLAMMATION [None]
  - NAUSEA [None]
  - STOMATITIS [None]
  - VOMITING [None]
